FAERS Safety Report 6463319-9 (Version None)
Quarter: 2009Q4

REPORT INFORMATION
  Report Type: 
  Country: None (occurrence: None)
  Receive Date: 20091130
  Receipt Date: 20090720
  Transmission Date: 20100525
  Serious: No
  Sender: FDA-Public Use
  Company Number: US-AMGEN-KDL300360

PATIENT
  Sex: Female
  Weight: 54.5 kg

DRUGS (2)
  1. ENBREL [Suspect]
     Indication: RHEUMATOID ARTHRITIS
     Route: 058
     Dates: start: 20020101
  2. LEVOTHYROXINE SODIUM [Concomitant]
     Dates: start: 20000101

REACTIONS (3)
  - PHARYNGITIS STREPTOCOCCAL [None]
  - SINUSITIS [None]
  - TONSILLITIS [None]
